FAERS Safety Report 6566234-5 (Version None)
Quarter: 2010Q1

REPORT INFORMATION
  Report Type: 
  Country: None (occurrence: None)
  Receive Date: 20100202
  Receipt Date: 20100120
  Transmission Date: 20100710
  Serious: Yes (Hospitalization, Other)
  Sender: FDA-Public Use
  Company Number: US-PFIZER INC-2010011795

PATIENT
  Sex: Male
  Weight: 64.5 kg

DRUGS (8)
  1. DILANTIN-125 [Suspect]
  2. BENICAR [Suspect]
  3. ENBREL [Suspect]
     Indication: RHEUMATOID ARTHRITIS
     Dosage: 50 MG, PRE-FILLED SYRINGE
     Route: 058
     Dates: start: 20040416
  4. METHOTREXATE [Concomitant]
     Dosage: 17.5 MG, UNK
     Route: 048
  5. AVODART [Concomitant]
     Dosage: 0.5 MG, UNK
  6. ACETYLSALICYLIC ACID [Concomitant]
     Dosage: 325 MG, UNK
  7. ZOCOR [Concomitant]
     Dosage: 40 MG, UNK
  8. MUCINEX [Concomitant]
     Dosage: 600 MG, 2 DOSES

REACTIONS (13)
  - AORTIC STENOSIS [None]
  - BENIGN PROSTATIC HYPERPLASIA [None]
  - CONVULSION [None]
  - CORONARY ARTERY DISEASE [None]
  - DIZZINESS [None]
  - EXTRASYSTOLES [None]
  - HYPOTENSION [None]
  - MYOCARDIAL INFARCTION [None]
  - PERIPHERAL VASCULAR DISORDER [None]
  - RENAL FAILURE ACUTE [None]
  - TONGUE HAEMORRHAGE [None]
  - VENTRICULAR FIBRILLATION [None]
  - VENTRICULAR TACHYCARDIA [None]
